FAERS Safety Report 10076177 (Version 1)
Quarter: 2014Q2

REPORT INFORMATION
  Report Type: Spontaneous
  Country: US (occurrence: US)
  Receive Date: 20140414
  Receipt Date: 20140414
  Transmission Date: 20141212
  Serious: Yes (Other)
  Sender: FDA-Public Use
  Company Number: US-ELI_LILLY_AND_COMPANY-US201404001208

PATIENT
  Sex: Male

DRUGS (2)
  1. HUMULIN 30% REGULAR, 70% NPH [Suspect]
     Indication: TYPE 2 DIABETES MELLITUS
     Dosage: UNK UNK, PRN
     Route: 065
  2. INSULIN HUMAN [Suspect]
     Indication: TYPE 2 DIABETES MELLITUS
     Route: 065

REACTIONS (9)
  - Myocardial infarction [Unknown]
  - Coronary artery occlusion [Unknown]
  - Coronary artery occlusion [Unknown]
  - Cardiovascular disorder [Unknown]
  - Renal failure chronic [Unknown]
  - Parkinson^s disease [Unknown]
  - Cardiac disorder [Unknown]
  - Nephropathy [Unknown]
  - Hypertension [Unknown]
